FAERS Safety Report 18284623 (Version 22)
Quarter: 2022Q4

REPORT INFORMATION
  Report Type: Spontaneous
  Country: GB (occurrence: GB)
  Receive Date: 20200919
  Receipt Date: 20221217
  Transmission Date: 20230113
  Serious: Yes (Hospitalization, Other)
  Sender: FDA-Public Use
  Company Number: GB-ROCHE-1621948

PATIENT
  Age: 57 Year
  Sex: Female

DRUGS (169)
  1. ANASTROZOLE [Suspect]
     Active Substance: ANASTROZOLE
     Indication: Breast cancer
     Dosage: 1 MILLIGRAM, ONCE A DAY
     Route: 048
     Dates: start: 20151021, end: 20171027
  2. EXEMESTANE [Suspect]
     Active Substance: EXEMESTANE
     Indication: Breast cancer
     Dosage: 25 MILLIGRAM, ONCE A DAY
     Route: 048
     Dates: start: 20090921
  3. EXEMESTANE [Suspect]
     Active Substance: EXEMESTANE
     Dosage: 25 MILLIGRAM, ONCE A DAY (25 MG, QD (1/DAY))
     Route: 048
     Dates: start: 20150328
  4. EXEMESTANE [Suspect]
     Active Substance: EXEMESTANE
     Dosage: 25 MILLIGRAM, ONCE A DAY (25 MG, QD (1/DAY))
     Route: 048
     Dates: start: 20151021
  5. EXEMESTANE [Suspect]
     Active Substance: EXEMESTANE
     Dosage: 25 MILLIGRAM, ONCE A DAY (25 MG, QD (1/DAY))
     Route: 048
     Dates: start: 20150921
  6. EXEMESTANE [Suspect]
     Active Substance: EXEMESTANE
     Dosage: 1 DOSAGE FORM, ONCE A DAY
     Route: 048
     Dates: start: 201607, end: 20160921
  7. EXEMESTANE [Suspect]
     Active Substance: EXEMESTANE
     Dosage: 1 MILLIGRAM, ONCE A DAY (1 DOSAGE FORMS DAILY)
     Route: 048
     Dates: start: 201607
  8. EXEMESTANE [Suspect]
     Active Substance: EXEMESTANE
     Indication: Breast cancer
     Dosage: 25 MILLIGRAM, ONCE A DAY
     Route: 048
     Dates: start: 20090921
  9. EXEMESTANE [Suspect]
     Active Substance: EXEMESTANE
     Indication: Breast cancer metastatic
     Dosage: 25 MILLIGRAM, ONCE A DAY
     Route: 048
     Dates: start: 20150328
  10. EXEMESTANE [Suspect]
     Active Substance: EXEMESTANE
     Dosage: 25 MILLIGRAM, ONCE A DAY
     Route: 048
     Dates: start: 20151021
  11. EXEMESTANE [Suspect]
     Active Substance: EXEMESTANE
     Dosage: 1 DOSAGE FORM, ONCE A DAY
     Route: 048
     Dates: start: 201607
  12. VINORELBINE TARTRATE [Suspect]
     Active Substance: VINORELBINE TARTRATE
     Indication: Breast cancer
     Dosage: 100 MILLIGRAM, ONCE A DAY
     Route: 048
     Dates: start: 20160901, end: 20160930
  13. VINORELBINE TARTRATE [Suspect]
     Active Substance: VINORELBINE TARTRATE
     Dosage: 100 MILLIGRAM, ONCE A DAY
     Route: 048
     Dates: start: 20160901, end: 20161028
  14. VINORELBINE TARTRATE [Suspect]
     Active Substance: VINORELBINE TARTRATE
     Dosage: 100 MILLIGRAM, ONCE A DAY
     Route: 048
     Dates: start: 20161028
  15. VINORELBINE TARTRATE [Suspect]
     Active Substance: VINORELBINE TARTRATE
     Dosage: 100 MILLIGRAM, DAILY, 100 MG, QD (1/DAY)
     Route: 048
     Dates: start: 20161111
  16. VINORELBINE TARTRATE [Suspect]
     Active Substance: VINORELBINE TARTRATE
     Dosage: 100 MILLIGRAM
     Route: 048
     Dates: start: 20161028, end: 20161028
  17. ARIMIDEX [Suspect]
     Active Substance: ANASTROZOLE
     Indication: Breast cancer metastatic
     Dosage: 1 MILLIGRAM, ONCE A DAY
     Route: 048
     Dates: start: 20151021
  18. CAPECITABINE [Suspect]
     Active Substance: CAPECITABINE
     Indication: Breast cancer
     Dosage: 1650 MILLIGRAM(1650 MG (FROM 01 SEP 2015) )
     Route: 048
     Dates: start: 20150901, end: 20160914
  19. CAPECITABINE [Suspect]
     Active Substance: CAPECITABINE
     Dosage: 3300 MILLIGRAM
     Route: 048
     Dates: start: 20160901, end: 20160914
  20. CAPECITABINE [Suspect]
     Active Substance: CAPECITABINE
     Dosage: 1650 MILLIGRAM (1650 MG (FROM 01 SEP 2015))
     Route: 048
     Dates: start: 20160914
  21. DOCETAXEL [Suspect]
     Active Substance: DOCETAXEL
     Indication: Breast cancer
     Dosage: 130 MILLIGRAM, (EVERY 2 WEEK, DATE OF LAST ADMINISTERED DOSE: 03-SEP-2015)
     Route: 042
     Dates: start: 20150507, end: 20150903
  22. DOCETAXEL [Suspect]
     Active Substance: DOCETAXEL
     Dosage: 130 MILLIGRAM, 3 WEEK
     Route: 042
     Dates: start: 20150507
  23. DOCETAXEL [Suspect]
     Active Substance: DOCETAXEL
     Dosage: UNK
     Route: 048
     Dates: start: 20150328
  24. DOCETAXEL [Suspect]
     Active Substance: DOCETAXEL
     Dosage: 100 MILLIGRAM
     Route: 048
     Dates: start: 20161111, end: 20161111
  25. DOCETAXEL [Suspect]
     Active Substance: DOCETAXEL
     Dosage: 100 MILLIGRAM
     Route: 048
     Dates: start: 20161028, end: 20161028
  26. HERCEPTIN [Suspect]
     Active Substance: TRASTUZUMAB
     Indication: Breast cancer
     Dosage: 462 MILLIGRAM (LOADING DOSE 3/WEEK (CV))
     Route: 042
     Dates: start: 20150506
  27. HERCEPTIN [Suspect]
     Active Substance: TRASTUZUMAB
     Dosage: 357 MILLIGRAM (357 MG, EVERY 3 WEEKS)
     Route: 042
     Dates: start: 20170620
  28. HERCEPTIN [Suspect]
     Active Substance: TRASTUZUMAB
     Dosage: LOADING DOSE 3/WEEK (CV)
     Route: 042
     Dates: start: 20150506, end: 20150506
  29. HERCEPTIN [Suspect]
     Active Substance: TRASTUZUMAB
     Dosage: 1071 MILLIGRAM, EVERY WEEK
     Route: 042
     Dates: start: 20150527
  30. HERCEPTIN [Suspect]
     Active Substance: TRASTUZUMAB
     Dosage: 357 MG, EVERY 3 WEEKS
     Route: 042
     Dates: start: 20150527, end: 20160630
  31. NAVELBINE [Suspect]
     Active Substance: VINORELBINE TARTRATE
     Indication: Breast cancer
     Dosage: 100 MILLIGRAM, ONCE A DAY
     Route: 048
     Dates: start: 20160901, end: 20160930
  32. NAVELBINE [Suspect]
     Active Substance: VINORELBINE TARTRATE
     Dosage: 100 MILLIGRAM, ONCE A DAY
     Route: 048
     Dates: start: 20161028, end: 20161028
  33. NAVELBINE [Suspect]
     Active Substance: VINORELBINE TARTRATE
     Dosage: 100 MILLIGRAM, ONCE A DAY
     Route: 048
     Dates: start: 20161111
  34. PERTUZUMAB [Suspect]
     Active Substance: PERTUZUMAB
     Indication: Breast cancer metastatic
     Dosage: 2520 MILLIGRAM, EVERY WEEK LOADING DOSE
     Route: 042
     Dates: start: 20150507
  35. PERTUZUMAB [Suspect]
     Active Substance: PERTUZUMAB
     Dosage: LOADING DOSE
     Route: 042
     Dates: start: 20150507, end: 20150507
  36. PERTUZUMAB [Suspect]
     Active Substance: PERTUZUMAB
     Dosage: 840 MILLIGRAM, EVERY 2 WEEK
     Route: 042
     Dates: start: 20150507, end: 20150507
  37. PERTUZUMAB [Suspect]
     Active Substance: PERTUZUMAB
     Dosage: 357 MILLIGRAM, EVERY 2 WEEKS
     Route: 042
     Dates: start: 20150527
  38. PERTUZUMAB [Suspect]
     Active Substance: PERTUZUMAB
     Dosage: 420 MILLIGRAM, EVERY WEEK
     Route: 042
     Dates: start: 20150527, end: 20160630
  39. PERTUZUMAB [Suspect]
     Active Substance: PERTUZUMAB
     Dosage: 357 MILLIGRAM, EVERY 3 WEEKS
     Route: 042
     Dates: start: 20150527, end: 20160630
  40. PERTUZUMAB [Suspect]
     Active Substance: PERTUZUMAB
     Dosage: 420 MILLIGRAM, EVERY THREE WEEKS
     Route: 042
     Dates: start: 20150527, end: 20160630
  41. PERTUZUMAB [Suspect]
     Active Substance: PERTUZUMAB
     Dosage: 462 MILLIGRAM (LOADING DOSE)
     Route: 065
     Dates: start: 20150606
  42. PERJETA [Suspect]
     Active Substance: PERTUZUMAB
     Indication: Breast cancer
     Dosage: 2520 MILLIGRAM, 7 DAYS LOADING DOSE
     Route: 042
     Dates: start: 20150507, end: 20150507
  43. PERJETA [Suspect]
     Active Substance: PERTUZUMAB
     Dosage: 420 MILLIGRAM, EVERY 3 WEEK
     Route: 042
     Dates: start: 20150527, end: 20160630
  44. PERJETA [Suspect]
     Active Substance: PERTUZUMAB
     Dosage: 420 MILLIGRAM, EVERY 3 WEEKS
     Route: 042
     Dates: start: 20160630
  45. TAXOTERE [Suspect]
     Active Substance: DOCETAXEL
     Indication: Breast cancer
     Dosage: 25 MILLIGRAM, ONCE A DAY
     Route: 048
     Dates: start: 20090921
  46. TAXOTERE [Suspect]
     Active Substance: DOCETAXEL
     Dosage: 25 MILLIGRAM, ONCE A DAY
     Route: 048
     Dates: start: 20150328
  47. TAXOTERE [Suspect]
     Active Substance: DOCETAXEL
     Dosage: 130 MILLIGRAM, UNK, EVERY 3 WEEKS
     Route: 042
     Dates: start: 20150507, end: 20150903
  48. TAXOTERE [Suspect]
     Active Substance: DOCETAXEL
     Dosage: 357 MILLIGRAM (TIW)
     Route: 042
     Dates: start: 20150527, end: 20160630
  49. TAXOTERE [Suspect]
     Active Substance: DOCETAXEL
     Dosage: 130 MILLIGRAM, EVERY 3 WEEKS
     Route: 042
     Dates: start: 20150903
  50. TAXOTERE [Suspect]
     Active Substance: DOCETAXEL
     Dosage: 25 MILLIGRAM, ONCE A DAY
     Route: 048
     Dates: start: 20151021
  51. TAXOTERE [Suspect]
     Active Substance: DOCETAXEL
     Dosage: 100 MILLIGRAM, ONCE A DAY
     Route: 042
     Dates: start: 20160128
  52. TAXOTERE [Suspect]
     Active Substance: DOCETAXEL
     Dosage: 100 MILLIGRAM, ONCE A DAY
     Route: 048
     Dates: start: 20160901
  53. TAXOTERE [Suspect]
     Active Substance: DOCETAXEL
     Dosage: 100 MILLIGRAM, ONCE A DAY
     Route: 048
     Dates: start: 20161028
  54. TAXOTERE [Suspect]
     Active Substance: DOCETAXEL
     Dosage: 100 MILLIGRAM DAILY
     Route: 042
     Dates: start: 20161111
  55. TRASTUZUMAB [Suspect]
     Active Substance: TRASTUZUMAB
     Indication: Breast cancer
     Dosage: 462 MILLIGRAM
     Route: 042
     Dates: start: 20150506, end: 20150506
  56. TRASTUZUMAB [Suspect]
     Active Substance: TRASTUZUMAB
     Dosage: 1071 MILLIGRAM, EVERY WEEK (357 MILLIGRAM EVERY 3 WEEKS)
     Route: 042
     Dates: start: 20150527, end: 20160603
  57. TRASTUZUMAB [Suspect]
     Active Substance: TRASTUZUMAB
     Dosage: 224  MILLIGRAM, TIW
     Route: 042
     Dates: start: 20170120, end: 20170830
  58. TRASTUZUMAB [Suspect]
     Active Substance: TRASTUZUMAB
     Dosage: 224 MILLIGRAM, EVERY 2 WEEK
     Route: 042
     Dates: start: 20170620, end: 20170830
  59. TRASTUZUMAB [Suspect]
     Active Substance: TRASTUZUMAB
     Dosage: 357 MILLIGRAM, EVERY TWO WEEK
     Route: 042
     Dates: start: 20170620
  60. TRASTUZUMAB [Suspect]
     Active Substance: TRASTUZUMAB
     Dosage: 1 DOSAGE FORM
     Route: 042
  61. ADO-TRASTUZUMAB EMTANSINE [Suspect]
     Active Substance: ADO-TRASTUZUMAB EMTANSINE
     Indication: Breast cancer
     Dosage: 462 MILLIGRAM, EVERY WEEK
     Route: 042
     Dates: start: 20150506, end: 20150506
  62. ADO-TRASTUZUMAB EMTANSINE [Suspect]
     Active Substance: ADO-TRASTUZUMAB EMTANSINE
     Dosage: 357 MILLIGRAM, EVERY WEEK
     Route: 042
     Dates: start: 20150527, end: 20160603
  63. ADO-TRASTUZUMAB EMTANSINE [Suspect]
     Active Substance: ADO-TRASTUZUMAB EMTANSINE
     Dosage: 224 MILLIGRAM, 3 TIMES A WEEK
     Route: 042
     Dates: start: 20170602, end: 20170830
  64. ADO-TRASTUZUMAB EMTANSINE [Suspect]
     Active Substance: ADO-TRASTUZUMAB EMTANSINE
     Dosage: 1 DOSAGE FORM, EVERY WEEK (1 OT, QW (20 JUN 2017) )
     Route: 042
  65. ADO-TRASTUZUMAB EMTANSINE [Suspect]
     Active Substance: ADO-TRASTUZUMAB EMTANSINE
     Dosage: 224 MILLIGRAM
     Route: 042
     Dates: start: 20170120, end: 20170830
  66. ADO-TRASTUZUMAB EMTANSINE [Suspect]
     Active Substance: ADO-TRASTUZUMAB EMTANSINE
     Dosage: 357 MILLIGRAM, EVERY WEEK
     Route: 042
     Dates: start: 20150527, end: 20160630
  67. XELODA [Suspect]
     Active Substance: CAPECITABINE
     Indication: Breast cancer
     Dosage: 3300 MILLIGRAM, ONCE A DAY
     Route: 048
     Dates: start: 20160901, end: 20160914
  68. XELODA [Suspect]
     Active Substance: CAPECITABINE
     Dosage: 1650 MILLIGRAM
     Route: 048
     Dates: start: 20160901
  69. CALCIUM CARBONATE\CHOLECALCIFEROL [Concomitant]
     Active Substance: CALCIUM CARBONATE\CHOLECALCIFEROL
     Indication: Product used for unknown indication
     Dosage: UNK
     Route: 048
     Dates: end: 20171027
  70. AMOXICILLIN [Concomitant]
     Active Substance: AMOXICILLIN
     Indication: Oropharyngeal pain
     Dosage: 3 DOSAGE FORM, 3 TIMES A DAY
     Route: 048
     Dates: start: 20151104, end: 20151111
  71. AMOXICILLIN [Concomitant]
     Active Substance: AMOXICILLIN
     Dosage: 27 DOSAGE FORM, ONCE A DAY
     Route: 048
     Dates: start: 20151104, end: 20151111
  72. AMITRIPTYLINE [Concomitant]
     Active Substance: AMITRIPTYLINE
     Indication: Product used for unknown indication
     Dosage: 10 MILLIGRAM, ONCE A DAY
     Route: 048
     Dates: start: 201603
  73. APREPITANT [Concomitant]
     Active Substance: APREPITANT
     Indication: Prophylaxis
     Dosage: UNK
     Route: 065
     Dates: start: 20150527, end: 20150905
  74. BECLOMETHASONE DIPROPIONATE [Concomitant]
     Active Substance: BECLOMETHASONE DIPROPIONATE
     Indication: Wheezing
     Dosage: UNK
     Route: 050
  75. BISOPROLOL [Concomitant]
     Active Substance: BISOPROLOL
     Indication: Palpitations
     Dosage: UNK
     Route: 048
     Dates: start: 20160602
  76. CALAMINE [Concomitant]
     Active Substance: CALAMINE\FERRIC OXIDE RED\ZINC OXIDE
     Indication: Rash
     Dosage: UNK( PRN 1 APPLICATION, AS NEEDED)
     Route: 061
     Dates: start: 20150915
  77. CALCIUM GLUCONATE [Concomitant]
     Active Substance: CALCIUM GLUCONATE
     Indication: Product used for unknown indication
     Dosage: UNK
     Route: 065
  78. HERBALS\SENNOSIDES [Concomitant]
     Active Substance: HERBALS\SENNOSIDES
     Indication: Constipation
     Dosage: UNK
     Route: 048
     Dates: start: 20161221
  79. COCODAMOL [Concomitant]
     Active Substance: ACETAMINOPHEN\CODEINE PHOSPHATE
     Indication: Headache
     Dosage: UNK
     Route: 048
     Dates: start: 20160929
  80. CODEINE [Concomitant]
     Active Substance: CODEINE
     Indication: Diarrhoea
     Dosage: UNK
     Route: 048
     Dates: start: 2015
  81. CODEINE [Concomitant]
     Active Substance: CODEINE
     Indication: Palpitations
     Dosage: UNK, SUBSEQUENT DOSE RECEIVED ON 18-NOV-2016
     Route: 048
     Dates: start: 20150506
  82. CODEINE [Concomitant]
     Active Substance: CODEINE
     Indication: Headache
     Dosage: UNK
     Route: 048
     Dates: start: 20150508, end: 20150904
  83. CODEINE [Concomitant]
     Active Substance: CODEINE
     Indication: Cough
     Dosage: UNK
     Route: 048
     Dates: start: 20150603, end: 20150715
  84. CODEINE [Concomitant]
     Active Substance: CODEINE
     Indication: Constipation
     Dosage: 60 MILLIGRAM, ONCE A DAY
     Route: 048
     Dates: start: 20150603, end: 20150715
  85. CODEINE [Concomitant]
     Active Substance: CODEINE
     Indication: Premedication
     Dosage: 60 MILLIGRAM, FOUR TIMES/DAY
     Route: 048
     Dates: start: 20150603
  86. CODEINE [Concomitant]
     Active Substance: CODEINE
     Indication: Muscle spasms
     Dosage: 2 MILLIGRAM
     Route: 048
     Dates: start: 201512
  87. CODEINE [Concomitant]
     Active Substance: CODEINE
     Indication: Urinary tract infection
     Dosage: 50 MILLIGRAM
     Route: 048
     Dates: start: 20160602, end: 20171027
  88. CODEINE [Concomitant]
     Active Substance: CODEINE
     Indication: Epilepsy
     Dosage: 1 DOSAGE FORM
     Route: 048
     Dates: start: 201607, end: 20160921
  89. CODEINE [Concomitant]
     Active Substance: CODEINE
     Indication: Product used for unknown indication
     Dosage: 250 MILLIGRAM
     Route: 048
     Dates: start: 20160727, end: 20171027
  90. CODEINE [Concomitant]
     Active Substance: CODEINE
     Dosage: UNK
     Route: 048
     Dates: start: 20160811, end: 20161027
  91. CODEINE [Concomitant]
     Active Substance: CODEINE
     Dosage: 1 DOSAGE FORM, ONCE A DAY
     Route: 048
     Dates: start: 20161004, end: 20161123
  92. CODEINE [Concomitant]
     Active Substance: CODEINE
     Dosage: UNK
     Route: 048
     Dates: start: 20161111, end: 2016
  93. CODEINE [Concomitant]
     Active Substance: CODEINE
     Dosage: 200 MILLIGRAM
     Route: 048
     Dates: start: 20161123, end: 20171027
  94. CODEINE [Concomitant]
     Active Substance: CODEINE
     Dosage: 1 DOSAGE FORM, ONCE A DAY
     Route: 048
     Dates: start: 20161123, end: 20161130
  95. CODEINE [Concomitant]
     Active Substance: CODEINE
     Dosage: UNK
     Route: 048
     Dates: start: 20161130, end: 20161201
  96. CODEINE [Concomitant]
     Active Substance: CODEINE
     Dosage: UNK
     Route: 048
     Dates: start: 201612, end: 201612
  97. CODEINE [Concomitant]
     Active Substance: CODEINE
     Dosage: 1 DOSAGE FORM
     Route: 048
     Dates: start: 20170201
  98. CODEINE [Concomitant]
     Active Substance: CODEINE
     Dosage: UNK
     Route: 048
     Dates: start: 20170207, end: 20170216
  99. CODEINE [Concomitant]
     Active Substance: CODEINE
     Dosage: UNK
     Route: 048
     Dates: start: 20170216, end: 20170830
  100. CODEINE [Concomitant]
     Active Substance: CODEINE
     Dosage: UNK, UNKNOWN
     Route: 048
  101. CODEINE [Concomitant]
     Active Substance: CODEINE
     Dosage: UNK
  102. CHLORHEXIDINE GLUCONATE [Concomitant]
     Active Substance: CHLORHEXIDINE GLUCONATE
     Indication: Mucosal inflammation
     Dosage: UNK(PRN 1 MOUTH WASH AS NEEDED)
     Route: 048
     Dates: start: 20150514
  103. CYCLIZINE [Concomitant]
     Active Substance: CYCLIZINE
     Indication: Prophylaxis
     Dosage: 150 MILLIGRAM, 3 TIMES A DAY
     Route: 048
     Dates: start: 20150603, end: 20150615
  104. CYCLIZINE [Concomitant]
     Active Substance: CYCLIZINE
     Dosage: 150 MILLIGRAM, ONCE A DAY
     Route: 048
     Dates: start: 20150603, end: 20150715
  105. CYCLIZINE [Concomitant]
     Active Substance: CYCLIZINE
     Dosage: 50 MILLIGRAM
     Route: 048
     Dates: start: 20150603
  106. CYCLIZINE [Concomitant]
     Active Substance: CYCLIZINE
     Dosage: UNK
  107. CYCLIZINE [Concomitant]
     Active Substance: CYCLIZINE
     Dosage: UNK
  108. DEXAMETHASONE [Concomitant]
     Active Substance: DEXAMETHASONE
     Indication: Premedication
     Dosage: 2 MILLIGRAM
     Route: 048
     Dates: start: 20150504, end: 20150904
  109. DEXAMETHASONE [Concomitant]
     Active Substance: DEXAMETHASONE
     Dosage: 1 DOSAGE FORM, ONCE A DAY
     Route: 048
     Dates: start: 20150506, end: 20150717
  110. DEXAMETHASONE [Concomitant]
     Active Substance: DEXAMETHASONE
     Dosage: 1 DOSAGE FORM, ONCE A DAY
     Route: 048
     Dates: start: 201607, end: 20160921
  111. DEXAMETHASONE [Concomitant]
     Active Substance: DEXAMETHASONE
     Dosage: 1 DOSAGE FORM, ONCE A DAY
     Route: 048
     Dates: start: 20160713, end: 201607
  112. DEXAMETHASONE [Concomitant]
     Active Substance: DEXAMETHASONE
     Dosage: 2 MILLIGRAM
     Route: 048
     Dates: start: 20160713, end: 20161004
  113. DEXAMETHASONE [Concomitant]
     Active Substance: DEXAMETHASONE
     Dosage: 1 DOSAGE FORM, ONCE A DAY
     Route: 048
     Dates: start: 20161004, end: 20161123
  114. DEXAMETHASONE [Concomitant]
     Active Substance: DEXAMETHASONE
     Dosage: 2 MILLIGRAM
     Route: 065
     Dates: start: 20161014
  115. DEXAMETHASONE [Concomitant]
     Active Substance: DEXAMETHASONE
     Dosage: 1 DOSAGE FORM, ONCE A DAY
     Route: 048
     Dates: start: 20161123, end: 20161130
  116. DEXAMETHASONE [Concomitant]
     Active Substance: DEXAMETHASONE
     Dosage: 1 DOSAGE FORM, ONCE A DAY
     Route: 048
     Dates: start: 20161130, end: 20161201
  117. DEXAMETHASONE [Concomitant]
     Active Substance: DEXAMETHASONE
     Dosage: 8 MILLIGRAM, ONCE A DAY
     Route: 048
     Dates: start: 20161130, end: 20161201
  118. DEXAMETHASONE [Concomitant]
     Active Substance: DEXAMETHASONE
     Dosage: 2 MILLIGRAM, ONCE A DAY
     Route: 048
     Dates: start: 201612, end: 201612
  119. DEXAMETHASONE [Concomitant]
     Active Substance: DEXAMETHASONE
     Dosage: 2 MG, UNK
     Route: 048
     Dates: start: 201612, end: 20170510
  120. DEXAMETHASONE [Concomitant]
     Active Substance: DEXAMETHASONE
     Dosage: 2 MG, UNK
     Route: 048
     Dates: start: 201612, end: 20170510
  121. DEXAMETHASONE [Concomitant]
     Active Substance: DEXAMETHASONE
     Dosage: 1 DOSAGE FORM, DAILY, 1 DF, QD (1/DAY)
     Route: 048
     Dates: start: 20170216, end: 20170830
  122. DEXAMETHASONE [Concomitant]
     Active Substance: DEXAMETHASONE
     Dosage: 8 MILLIGRAM
     Route: 048
     Dates: start: 20150504, end: 20150904
  123. DEXAMETHASONE [Concomitant]
     Active Substance: DEXAMETHASONE
     Dosage: 2 MILLIGRAM
     Route: 065
     Dates: start: 20150504, end: 20150904
  124. DEXAMETHASONE [Concomitant]
     Active Substance: DEXAMETHASONE
     Dosage: 1 DOSAGE FORM, ONCE A DAY
     Route: 048
     Dates: start: 20161004, end: 20161123
  125. DEXAMETHASONE [Concomitant]
     Active Substance: DEXAMETHASONE
     Dosage: UNK
  126. FLUCLOXACILLIN [Concomitant]
     Active Substance: FLUCLOXACILLIN
     Indication: Nail infection
     Dosage: 750 MILLIGRAM, ONCE A DAY(250 MILLIGRAM, TID)
     Route: 048
     Dates: start: 20150603, end: 20150610
  127. FLUCLOXACILLIN [Concomitant]
     Active Substance: FLUCLOXACILLIN
     Dosage: UNK
     Route: 048
     Dates: start: 20171004
  128. FLUCONAZOLE [Concomitant]
     Active Substance: FLUCONAZOLE
     Indication: Product used for unknown indication
     Dosage: UNK
     Route: 048
     Dates: start: 20171004
  129. Gelclair [Concomitant]
     Indication: Mucosal inflammation
     Dosage: 1 DOSAGE FORM, ONCE A DAY
     Route: 048
     Dates: start: 20150514
  130. HYDROCORTISONE [Concomitant]
     Active Substance: HYDROCORTISONE
     Indication: Rash
     Dosage: UNK (LOTION APPLICATION)
     Route: 061
     Dates: start: 20150725
  131. IBUPROFEN [Concomitant]
     Active Substance: IBUPROFEN
     Indication: Headache
     Dosage: 1 DOSAGE FORM, ONCE A DAY(1 TABLET)
     Route: 048
     Dates: start: 20170201
  132. KEPPRA [Concomitant]
     Active Substance: LEVETIRACETAM
     Indication: Muscle twitching
     Dosage: 1 DOSAGE FORM, TWO TIMES A DAY (UNK, BID (2/DAY))
     Route: 048
     Dates: start: 20160727, end: 20160810
  133. KEPPRA [Concomitant]
     Active Substance: LEVETIRACETAM
     Dosage: 1 DOSAGE FORM, TWO TIMES A DAY
     Route: 048
     Dates: start: 20160811
  134. LACTULOSE [Concomitant]
     Active Substance: LACTULOSE
     Indication: Neuralgia
     Dosage: UNK
     Route: 048
     Dates: start: 201603, end: 20171021
  135. LACTULOSE [Concomitant]
     Active Substance: LACTULOSE
     Indication: Constipation
     Dosage: UNK(MONTHLY)
     Route: 048
     Dates: start: 20170201, end: 201703
  136. LACTULOSE [Concomitant]
     Active Substance: LACTULOSE
     Indication: Neuralgia
     Dosage: UNK
     Route: 048
     Dates: start: 20161221
  137. LACTULOSE [Concomitant]
     Active Substance: LACTULOSE
     Dosage: UNK
     Route: 048
     Dates: start: 20161221, end: 20171021
  138. LANSOPRAZOLE [Concomitant]
     Active Substance: LANSOPRAZOLE
     Indication: Prophylaxis
     Dosage: UNK
     Route: 048
     Dates: start: 20150504, end: 20171027
  139. LEVETIRACETAM [Concomitant]
     Active Substance: LEVETIRACETAM
     Indication: Epilepsy
     Dosage: 2 DOSAGE FORM, TWO TIMES A DAY
     Route: 048
     Dates: start: 20160727, end: 20160810
  140. LEVETIRACETAM [Concomitant]
     Active Substance: LEVETIRACETAM
     Dosage: 250 MILLIGRAM
     Route: 048
     Dates: start: 20160727, end: 20171027
  141. LEVETIRACETAM [Concomitant]
     Active Substance: LEVETIRACETAM
     Dosage: 2 DOSAGE FORM, TWO TIMES A DAY
     Route: 048
     Dates: start: 20160811, end: 20161027
  142. LEVETIRACETAM [Concomitant]
     Active Substance: LEVETIRACETAM
     Dosage: 1 DOSAGE FORM, TWO TIMES A DAY
     Route: 048
     Dates: start: 20160811, end: 20161027
  143. LOPERAMIDE [Concomitant]
     Active Substance: LOPERAMIDE
     Indication: Product used for unknown indication
     Dosage: 4 MILLIGRAM
     Route: 048
     Dates: start: 20150514, end: 20150904
  144. LOSARTAN [Concomitant]
     Active Substance: LOSARTAN
     Indication: Palpitations
     Dosage: 50 MILLIGRAM
     Route: 048
     Dates: start: 20160602
  145. METOCLOPRAMIDE [Concomitant]
     Active Substance: METOCLOPRAMIDE
     Indication: Product used for unknown indication
     Dosage: UNK
     Route: 048
     Dates: start: 20150506
  146. METOCLOPRAMIDE [Concomitant]
     Active Substance: METOCLOPRAMIDE
     Dosage: UNK UNK, TWO TIMES A DAY
     Route: 042
     Dates: start: 20150506, end: 20150903
  147. METOCLOPRAMIDE [Concomitant]
     Active Substance: METOCLOPRAMIDE
     Dosage: 2 DOSAGE FORM, ONCE A DAY
     Route: 042
     Dates: start: 20150506, end: 20150903
  148. METOCLOPRAMIDE [Concomitant]
     Active Substance: METOCLOPRAMIDE
     Dosage: UNK(SUBSEQUENT DOSE RECEIVED ON 18/NOV/2016 ())
     Route: 048
     Dates: start: 20150506, end: 2016
  149. METOCLOPRAMIDE [Concomitant]
     Active Substance: METOCLOPRAMIDE
     Dosage: 2 DOSAGE FORM, ONCE A DAY
     Route: 048
     Dates: start: 20170301
  150. METOCLOPRAMIDE [Concomitant]
     Active Substance: METOCLOPRAMIDE
     Dosage: 2 DOSAGE FORM, ONCE A DAY(SUBSEQUENT DOSE RECEIVED ON 18/NOV/2016)
     Route: 048
     Dates: start: 20170301, end: 2017
  151. METOCLOPRAMIDE [Concomitant]
     Active Substance: METOCLOPRAMIDE
     Dosage: 2 DOSAGE FORM, ONCE A DAY
     Route: 048
     Dates: start: 20170815, end: 2017
  152. METOCLOPRAMIDE [Concomitant]
     Active Substance: METOCLOPRAMIDE
     Dosage: UNK
     Route: 048
     Dates: start: 20161118
  153. NITROFURANTOIN [Concomitant]
     Active Substance: NITROFURANTOIN
     Indication: Product used for unknown indication
     Dosage: UNK
     Route: 065
     Dates: start: 20170621
  154. ONDANSETRON [Concomitant]
     Active Substance: ONDANSETRON
     Indication: Product used for unknown indication
     Dosage: UNK
     Route: 048
     Dates: start: 20150508, end: 20150904
  155. ONDANSETRON [Concomitant]
     Active Substance: ONDANSETRON
     Dosage: UNK
     Route: 048
     Dates: start: 20161111, end: 2016
  156. ACETAMINOPHEN [Concomitant]
     Active Substance: ACETAMINOPHEN
     Indication: Headache
     Dosage: UNK
     Route: 058
     Dates: start: 20150506
  157. ACETAMINOPHEN [Concomitant]
     Active Substance: ACETAMINOPHEN
     Dosage: UNK
     Route: 048
     Dates: start: 20160629
  158. PEGFILGRASTIM [Concomitant]
     Active Substance: PEGFILGRASTIM
     Indication: Product used for unknown indication
     Dosage: UNK
     Route: 058
     Dates: start: 20150506
  159. CHLORPHENIRAMINE MALEATE [Concomitant]
     Active Substance: CHLORPHENIRAMINE MALEATE
     Indication: Rash
     Dosage: 5 MILLIGRAM
     Route: 048
     Dates: start: 20150725
  160. RAMIPRIL [Concomitant]
     Active Substance: RAMIPRIL
     Indication: Cough
     Dosage: 435 MILLIGRAM
     Route: 048
  161. RAMIPRIL [Concomitant]
     Active Substance: RAMIPRIL
     Indication: Palpitations
     Dosage: 5 MILLIGRAM, ONCE A DAY (5 MG, QD (1/DAY))
     Route: 048
     Dates: start: 20160308
  162. SENNA [Concomitant]
     Active Substance: SENNA LEAF\SENNOSIDES\SENNOSIDES A AND B
     Indication: Constipation
     Dosage: UNK
     Route: 048
     Dates: start: 20161221
  163. SPIRONOLACTONE [Concomitant]
     Active Substance: SPIRONOLACTONE
     Indication: Palpitations
     Dosage: UNK
     Route: 048
     Dates: start: 20160602
  164. TRIMETHOPRIM [Concomitant]
     Active Substance: TRIMETHOPRIM
     Indication: Urinary tract infection
     Dosage: UNK
     Route: 048
     Dates: start: 20170209, end: 20170216
  165. VENTOLIN [Concomitant]
     Active Substance: ALBUTEROL SULFATE
     Indication: Wheezing
     Dosage: UNK
     Route: 065
     Dates: start: 20170621
  166. ACETAMINOPHEN\CODEINE PHOSPHATE [Concomitant]
     Active Substance: ACETAMINOPHEN\CODEINE PHOSPHATE
     Indication: Headache
     Dosage: UNK
     Route: 048
     Dates: start: 20160929
  167. QUININE [Concomitant]
     Active Substance: QUININE
     Indication: Muscle spasms
     Dosage: 200 MILLIGRAM
     Route: 048
     Dates: start: 20161123
  168. CODEINE PHOSPHATE [Concomitant]
     Active Substance: CODEINE PHOSPHATE
     Indication: Product used for unknown indication
     Dosage: 60 MILLIGRAM, QD (QDS AS NEEDED)
     Route: 048
     Dates: start: 20150603
  169. ANASTROZOLE [Concomitant]
     Active Substance: ANASTROZOLE
     Indication: Product used for unknown indication
     Dosage: 1 MILLIGRAM, ONCE A DAY
     Route: 048
     Dates: start: 20151021, end: 20171027

REACTIONS (32)
  - Abdominal pain [Unknown]
  - Alopecia [Unknown]
  - Cardiovascular insufficiency [Unknown]
  - Chest pain [Recovered/Resolved]
  - Constipation [Recovered/Resolved]
  - Cough [Recovered/Resolved]
  - Depressed mood [Not Recovered/Not Resolved]
  - Diarrhoea [Recovered/Resolved]
  - Dizziness [Unknown]
  - Fatigue [Not Recovered/Not Resolved]
  - Headache [Recovered/Resolved]
  - Hiccups [Recovered/Resolved]
  - Lacrimation increased [Not Recovered/Not Resolved]
  - Left ventricular dysfunction [Not Recovered/Not Resolved]
  - Neuropathy peripheral [Not Recovered/Not Resolved]
  - Muscle spasms [Unknown]
  - Muscle twitching [Unknown]
  - Mucosal inflammation [Unknown]
  - Nail disorder [Recovered/Resolved]
  - Nail infection [Recovered/Resolved]
  - Nasopharyngitis [Recovered/Resolved]
  - Nausea [Recovered/Resolved]
  - Neuralgia [Not Recovered/Not Resolved]
  - Oropharyngeal pain [Recovered/Resolved]
  - Poor peripheral circulation [Unknown]
  - Rash [Recovered/Resolved]
  - Seizure [Unknown]
  - Urinary tract infection [Recovered/Resolved]
  - Vaginal discharge [Recovered/Resolved]
  - Weight decreased [Unknown]
  - Palpitations [Not Recovered/Not Resolved]
  - Wheezing [Recovered/Resolved]

NARRATIVE: CASE EVENT DATE: 20150508
